FAERS Safety Report 9866813 (Version 1)
Quarter: 2014Q1

REPORT INFORMATION
  Report Type: Spontaneous
  Country: FR (occurrence: FR)
  Receive Date: 20140204
  Receipt Date: 20140204
  Transmission Date: 20141002
  Serious: Yes (Hospitalization)
  Sender: FDA-Public Use
  Company Number: FR-AMGEN-FRASP2014006381

PATIENT
  Age: 67 Year
  Sex: Female

DRUGS (19)
  1. XGEVA [Suspect]
     Indication: BREAST CANCER METASTATIC
     Dosage: UNK
     Route: 042
     Dates: start: 20130725
  2. PACLITAXEL KABI [Concomitant]
     Indication: BREAST CANCER METASTATIC
     Dosage: UNK UNK, QWK
     Dates: start: 20130807, end: 20130919
  3. AVASTIN                            /00848101/ [Concomitant]
     Indication: BREAST CANCER METASTATIC
     Dosage: UNK
     Route: 042
     Dates: start: 20130807
  4. SKENAN [Concomitant]
     Dosage: 60 MG, UNK
  5. ACTISKENAN [Concomitant]
     Dosage: 10 MG, UNK
  6. ENALAPRIL [Concomitant]
     Dosage: 20 MG, UNK
  7. FUROSEMIDE [Concomitant]
     Dosage: 40 MG, QD
  8. INIPOMP [Concomitant]
     Dosage: 40 MG, UNK
  9. INNOHEP [Concomitant]
     Dosage: 10000 IU, QWK
  10. EPREX [Concomitant]
     Dosage: 30000 IU, QWK
  11. ROCEPHINE [Concomitant]
     Dosage: UNK
     Dates: start: 20130912
  12. TAZOCILLINE [Concomitant]
     Dosage: UNK
     Dates: start: 20130919
  13. TIENAM [Concomitant]
  14. ZYVOXID [Concomitant]
  15. ROVAMYCINE                         /00074401/ [Concomitant]
  16. BACTRIM [Concomitant]
  17. SOLUMEDROL [Concomitant]
  18. LETROZOLE [Concomitant]
  19. PACLITAXEL [Concomitant]

REACTIONS (1)
  - Interstitial lung disease [Recovering/Resolving]
